FAERS Safety Report 26082796 (Version 1)
Quarter: 2025Q4

REPORT INFORMATION
  Report Type: Report from Study
  Country: CA (occurrence: CA)
  Receive Date: 20251124
  Receipt Date: 20251124
  Transmission Date: 20260117
  Serious: Yes (Other)
  Sender: ABBVIE
  Company Number: CA-ABBVIE-6561680

PATIENT
  Age: 38 Year
  Sex: Female

DRUGS (2)
  1. BOTOX [Suspect]
     Active Substance: ONABOTULINUMTOXINA
     Indication: Migraine
     Dosage: TIME INTERVAL: AS NECESSARY: (1X200) INTERNATIONAL UNIT ?EVERY 3 MONTH(S)
     Route: 065
     Dates: start: 20250423, end: 20250423
  2. AXERT [Concomitant]
     Active Substance: ALMOTRIPTAN MALATE
     Indication: Product used for unknown indication

REACTIONS (1)
  - Nasal operation [Unknown]

NARRATIVE: CASE EVENT DATE: 20250101
